FAERS Safety Report 5154827-1 (Version None)
Quarter: 2006Q4

REPORT INFORMATION
  Report Type: 
  Country: None (occurrence: None)
  Receive Date: 20061121
  Receipt Date: 20061113
  Transmission Date: 20070319
  Serious: Yes (Other)
  Sender: FDA-Public Use
  Company Number: US-JNJFOC-20061103147

PATIENT
  Sex: Male
  Weight: 49.9 kg

DRUGS (2)
  1. CONCERTA [Suspect]
     Indication: ATTENTION DEFICIT/HYPERACTIVITY DISORDER
     Route: 048
  2. MIRALAX [Concomitant]
     Indication: CONSTIPATION

REACTIONS (1)
  - HALLUCINATION, VISUAL [None]
